FAERS Safety Report 14898524 (Version 4)
Quarter: 2018Q2

REPORT INFORMATION
  Report Type: Report from Study
  Country: US (occurrence: US)
  Receive Date: 20180515
  Receipt Date: 20180604
  Transmission Date: 20180711
  Serious: Yes (Death, Hospitalization)
  Sender: FDA-Public Use
  Company Number: US-EISAI MEDICAL RESEARCH-EC-2018-039649

PATIENT
  Age: 82 Year
  Sex: Female
  Weight: 82 kg

DRUGS (1)
  1. LENVIMA [Suspect]
     Active Substance: LENVATINIB
     Indication: THYROID CANCER
     Route: 048
     Dates: start: 201804

REACTIONS (7)
  - Dehydration [Not Recovered/Not Resolved]
  - Dysphagia [Unknown]
  - Weight decreased [Unknown]
  - Fall [Not Recovered/Not Resolved]
  - Death [Fatal]
  - Asthenia [Not Recovered/Not Resolved]
  - Vomiting [Not Recovered/Not Resolved]

NARRATIVE: CASE EVENT DATE: 20180418
